FAERS Safety Report 14304896 (Version 1)
Quarter: 2017Q4

REPORT INFORMATION
  Report Type: Spontaneous
  Country: JP (occurrence: JP)
  Receive Date: 20171219
  Receipt Date: 20171219
  Transmission Date: 20180321
  Serious: Yes (Life-Threatening, Other)
  Sender: FDA-Public Use
  Company Number: JP-OTSUKA-03100-JPN-06-0158

PATIENT
  Age: 82 Year
  Sex: Female
  Weight: 52 kg

DRUGS (9)
  1. ABILIFY [Suspect]
     Active Substance: ARIPIPRAZOLE
     Indication: HALLUCINATION
     Dosage: 3 MG, QD
     Route: 048
     Dates: start: 20060626, end: 20060717
  2. RISPERIDONE. [Suspect]
     Active Substance: RISPERIDONE
     Indication: HALLUCINATION
     Dosage: 3 MG, QD
     Route: 048
     Dates: start: 20060626, end: 20060717
  3. BIPERIDEN HCL [Concomitant]
     Active Substance: BIPERIDEN HYDROCHLORIDE
     Indication: PARKINSONISM
     Dosage: 1 MG, UNK
     Route: 048
     Dates: start: 20060626, end: 20060717
  4. ABILIFY [Suspect]
     Active Substance: ARIPIPRAZOLE
     Indication: DELUSION
  5. RISPERDAL [Suspect]
     Active Substance: RISPERIDONE
     Indication: HALLUCINATION
     Dosage: 1 MG, BID
     Route: 048
     Dates: start: 20060626, end: 20060702
  6. AKINETON [Concomitant]
     Active Substance: BIPERIDEN HYDROCHLORIDE
     Indication: PARKINSONISM
     Dosage: 1 MG, UNK
     Route: 048
     Dates: start: 20060626, end: 20060717
  7. LENDORMIN D [Concomitant]
     Active Substance: BROTIZOLAM
     Indication: INSOMNIA
     Dosage: 0.25 MG, QD
     Route: 048
     Dates: start: 20060626, end: 20060717
  8. RISPERDAL [Suspect]
     Active Substance: RISPERIDONE
     Indication: DELUSION
     Dosage: 1.5 MG, BID
     Route: 048
     Dates: start: 20060703, end: 20060717
  9. RISPERDAL [Suspect]
     Active Substance: RISPERIDONE
     Indication: AGITATION

REACTIONS (2)
  - Pulmonary embolism [Not Recovered/Not Resolved]
  - Sedation complication [Recovering/Resolving]

NARRATIVE: CASE EVENT DATE: 20060626
